FAERS Safety Report 16568542 (Version 1)
Quarter: 2019Q3

REPORT INFORMATION
  Report Type: Spontaneous
  Country: US (occurrence: US)
  Receive Date: 20190712
  Receipt Date: 20190712
  Transmission Date: 20191004
  Serious: Yes (Death)
  Sender: FDA-Public Use
  Company Number: PHHY2019US161509

PATIENT
  Age: 66 Year
  Sex: Male

DRUGS (5)
  1. AMPHOTERICIN B. [Suspect]
     Active Substance: AMPHOTERICIN B
     Indication: HISTOPLASMOSIS
     Dosage: UNK
     Route: 065
  2. PREDNISONE. [Suspect]
     Active Substance: PREDNISONE
     Indication: POLYCHONDRITIS
     Dosage: UNK
     Route: 065
  3. ETANERCEPT [Suspect]
     Active Substance: ETANERCEPT
     Indication: POLYCHONDRITIS
     Dosage: UNK
     Route: 065
  4. ITRACONAZOLE. [Suspect]
     Active Substance: ITRACONAZOLE
     Indication: HISTOPLASMOSIS
     Dosage: UNK
     Route: 065
  5. INFLIXIMAB [Suspect]
     Active Substance: INFLIXIMAB
     Indication: POLYCHONDRITIS
     Dosage: UNK
     Route: 065

REACTIONS (6)
  - Histoplasmosis [Fatal]
  - Arthralgia [Unknown]
  - Gingival disorder [Fatal]
  - Glossodynia [Fatal]
  - Product use in unapproved indication [Unknown]
  - Treatment failure [Unknown]
